FAERS Safety Report 8062737-5 (Version None)
Quarter: 2012Q1

REPORT INFORMATION
  Report Type: 
  Country: None (occurrence: None)
  Receive Date: 20120123
  Receipt Date: 20120118
  Transmission Date: 20120608
  Serious: Yes (Other)
  Sender: FDA-Public Use
  Company Number: US-PFIZER INC-2012014808

PATIENT
  Sex: Male
  Weight: 87.528 kg

DRUGS (3)
  1. MS CONTIN [Concomitant]
     Dosage: 100 MG, UNK
  2. LIPITOR [Suspect]
     Indication: BLOOD CHOLESTEROL INCREASED
     Dosage: 80 MG, 1X/DAY
     Route: 048
  3. OXYCODONE [Concomitant]
     Dosage: 15 MG, UNK

REACTIONS (1)
  - CENTRAL NERVOUS SYSTEM STIMULATION [None]
